FAERS Safety Report 22640543 (Version 3)
Quarter: 2024Q2

REPORT INFORMATION
  Report Type: Report from Study
  Country: MX (occurrence: MX)
  Receive Date: 20230626
  Receipt Date: 20240417
  Transmission Date: 20240716
  Serious: No
  Sender: FDA-Public Use
  Company Number: MX-002147023-NVSC2023MX143924

PATIENT
  Age: 32 Year
  Sex: Male
  Weight: 87 kg

DRUGS (6)
  1. COSENTYX [Suspect]
     Active Substance: SECUKINUMAB
     Indication: Ankylosing spondylitis
     Dosage: 1 DOSAGE FORM, QW (150 MG)
     Route: 058
     Dates: start: 20220720
  2. COSENTYX [Suspect]
     Active Substance: SECUKINUMAB
     Indication: Sacroiliitis
     Dosage: 1 DOSAGE FORM, QW, FOR FIVE WEEKS (150MG)
     Route: 058
     Dates: start: 20220720
  3. COSENTYX [Suspect]
     Active Substance: SECUKINUMAB
     Indication: Retinal vasculitis
     Dosage: 1 DOSAGE FORM, QMO (150 MG)
     Route: 058
  4. CELECOXIB [Concomitant]
     Active Substance: CELECOXIB
     Indication: Back pain
     Dosage: 1 DOSAGE FORM, PRN (200MG, UPON NEED)
     Route: 048
     Dates: start: 2021
  5. CELECOXIB [Concomitant]
     Active Substance: CELECOXIB
     Indication: Arthralgia
  6. SULFASALAZINE [Concomitant]
     Active Substance: SULFASALAZINE
     Indication: Ankylosing spondylitis
     Dosage: 1 DOSAGE FORM, BID (500MG)
     Route: 048
     Dates: start: 2021, end: 202301

REACTIONS (2)
  - Dysstasia [Unknown]
  - Product use in unapproved indication [Unknown]

NARRATIVE: CASE EVENT DATE: 20220720
